FAERS Safety Report 8512350 (Version 3)
Quarter: 2012Q4

REPORT INFORMATION
  Report Type: 
  Country: US (occurrence: US)
  Receive Date: 20120413
  Receipt Date: 20121002
  Transmission Date: 20130627
  Serious: No
  Sender: FDA-Public Use
  Company Number: US-ASTRAZENECA-2012SE05993

PATIENT
  Age: 76 Year
  Sex: Male

DRUGS (2)
  1. NEXIUM [Suspect]
     Route: 048
  2. NEXIUM [Suspect]
     Route: 048

REACTIONS (5)
  - Gastrooesophageal reflux disease [Unknown]
  - Gastric disorder [Unknown]
  - Cardiac disorder [Unknown]
  - Abdominal pain upper [Unknown]
  - Drug dose omission [Unknown]
